FAERS Safety Report 8529091-3 (Version None)
Quarter: 2012Q3

REPORT INFORMATION
  Report Type: 
  Country: None (occurrence: None)
  Receive Date: 20120716
  Receipt Date: 20120716
  Transmission Date: 20120928
  Serious: Yes (Other)
  Sender: FDA-Public Use
  Company Number: None

PATIENT
  Sex: Female
  Weight: 75.2971 kg

DRUGS (1)
  1. BUDESONIDE [Suspect]
     Indication: COLITIS
     Dosage: 1 TABLET DAILY ABOUT 6-7 MOS

REACTIONS (7)
  - PRODUCT SUBSTITUTION ISSUE [None]
  - BLOOD GLUCOSE DECREASED [None]
  - FATIGUE [None]
  - ASTHENIA [None]
  - DIARRHOEA [None]
  - CONTUSION [None]
  - DRUG INEFFECTIVE [None]
